FAERS Safety Report 8432637-7 (Version None)
Quarter: 2012Q2

REPORT INFORMATION
  Report Type: 
  Country: None (occurrence: None)
  Receive Date: 20120613
  Receipt Date: 20120606
  Transmission Date: 20120825
  Serious: Yes (Death)
  Sender: FDA-Public Use
  Company Number: US-UCBSA-053755

PATIENT
  Age: 54 Year
  Sex: Male
  Weight: 114.75 kg

DRUGS (4)
  1. CIMZIA [Suspect]
     Indication: CROHN'S DISEASE
     Route: 058
     Dates: start: 20110224
  2. BIFERA [Concomitant]
  3. VITAMIN B-12 [Concomitant]
  4. LIALDA [Concomitant]
     Indication: CROHN'S DISEASE
     Dosage: 4 TABLETS W/A MEAL ONCE A DAY
     Route: 048
     Dates: start: 20110707

REACTIONS (1)
  - COMPLETED SUICIDE [None]
